FAERS Safety Report 10069556 (Version 1)
Quarter: 2014Q2

REPORT INFORMATION
  Report Type: Spontaneous
  Country: US (occurrence: US)
  Receive Date: 20140410
  Receipt Date: 20140410
  Transmission Date: 20141212
  Serious: No
  Sender: FDA-Public Use
  Company Number: US-BIOGENIDEC-2014BI033465

PATIENT
  Sex: Female

DRUGS (1)
  1. TYSABRI [Suspect]
     Indication: MULTIPLE SCLEROSIS
     Route: 042
     Dates: start: 20131009, end: 20140102

REACTIONS (7)
  - Pain [Unknown]
  - Influenza like illness [Unknown]
  - Stress [Unknown]
  - Pain of skin [Unknown]
  - General symptom [Unknown]
  - Memory impairment [Unknown]
  - Fatigue [Unknown]
